FAERS Safety Report 7828951-6 (Version None)
Quarter: 2011Q4

REPORT INFORMATION
  Report Type: 
  Country: None (occurrence: None)
  Receive Date: 20111020
  Receipt Date: 20111013
  Transmission Date: 20120403
  Serious: No
  Sender: FDA-Public Use
  Company Number: US-BAYER-2011-101072

PATIENT
  Sex: Female

DRUGS (2)
  1. BETASERON [Suspect]
  2. COPAXONE [Suspect]

REACTIONS (1)
  - INJECTION SITE SCAR [None]
